FAERS Safety Report 5825401-6 (Version None)
Quarter: 2008Q3

REPORT INFORMATION
  Report Type: 
  Country: None (occurrence: None)
  Receive Date: 20080729
  Receipt Date: 20080103
  Transmission Date: 20090109
  Serious: No
  Sender: FDA-Public Use
  Company Number: US-BAYER-200810090BCC

PATIENT
  Age: 43 Year
  Sex: Female
  Weight: 52 kg

DRUGS (5)
  1. MIDOL [Suspect]
     Indication: DYSMENORRHOEA
     Dosage: UNIT DOSE: 220 MG
     Route: 048
     Dates: start: 20080102
  2. PAXIL [Concomitant]
  3. LEXAPRO [Concomitant]
  4. XANAX [Concomitant]
  5. ARMOUR THYROID [Concomitant]

REACTIONS (1)
  - PALPITATIONS [None]
